FAERS Safety Report 9010400 (Version 1)
Quarter: 2013Q1

REPORT INFORMATION
  Report Type: Spontaneous
  Country: US (occurrence: US)
  Receive Date: 20130109
  Receipt Date: 20130109
  Transmission Date: 20140127
  Serious: Yes (Life-Threatening, Other)
  Sender: FDA-Public Use
  Company Number: US-009507513-0909USA03229

PATIENT
  Age: 20 Year
  Sex: Female
  Weight: 58.97 kg

DRUGS (4)
  1. SINGULAIR [Suspect]
     Indication: MULTIPLE ALLERGIES
     Dosage: 10 MG, QD
     Route: 048
     Dates: start: 200806, end: 20090112
  2. SINGULAIR [Suspect]
     Indication: ASTHMA
  3. EFFEXOR [Concomitant]
  4. CITALOPRAM [Concomitant]

REACTIONS (2)
  - Suicidal ideation [Unknown]
  - Major depression [Unknown]
